FAERS Safety Report 8971244 (Version 1)
Quarter: 2012Q4

REPORT INFORMATION
  Report Type: 
  Country: FR (occurrence: FR)
  Receive Date: 20121217
  Receipt Date: 20121217
  Transmission Date: 20130627
  Serious: Yes (Hospitalization)
  Sender: FDA-Public Use
  Company Number: FR-GLAXOSMITHKLINE-B0850770A

PATIENT
  Age: 58 Year
  Sex: Female

DRUGS (11)
  1. ZOPHREN [Suspect]
     Indication: PRODUCT USED FOR UNKNOWN INDICATION
     Dosage: 8MG As required
     Route: 042
     Dates: start: 201206, end: 20120629
  2. ROCEPHINE [Suspect]
     Indication: INFECTIOUS PERITONITIS
     Dosage: 1G Per day
     Route: 042
     Dates: start: 20120614, end: 20120629
  3. FLAGYL [Suspect]
     Indication: INFECTIOUS PERITONITIS
     Dosage: 1INJ Three times per day
     Route: 042
     Dates: start: 20120620, end: 20120629
  4. CALCIPARINE [Suspect]
     Indication: PRODUCT USED FOR UNKNOWN INDICATION
     Dosage: 7500IU Twice per day
     Route: 058
     Dates: start: 201206
  5. ACUPAN [Suspect]
     Indication: PRODUCT USED FOR UNKNOWN INDICATION
     Route: 065
     Dates: start: 20120608, end: 20120705
  6. ARANESP [Suspect]
     Indication: PRODUCT USED FOR UNKNOWN INDICATION
     Route: 065
     Dates: start: 201206
  7. FUROSEMIDE [Suspect]
     Indication: PRODUCT USED FOR UNKNOWN INDICATION
     Route: 065
     Dates: start: 20120609, end: 20120630
  8. DEBRIDAT [Suspect]
     Indication: PRODUCT USED FOR UNKNOWN INDICATION
     Dosage: 1UNIT Four times per day
     Route: 042
     Dates: start: 201206
  9. PARACETAMOL [Suspect]
     Indication: PRODUCT USED FOR UNKNOWN INDICATION
     Dosage: 1G Four times per day
     Route: 042
     Dates: start: 201206
  10. LEVOTHYROXINE [Concomitant]
     Indication: HYPOTHYROIDISM
     Dosage: 125MG Per day
     Route: 042
  11. INEXIUM [Concomitant]
     Dates: start: 20120630

REACTIONS (1)
  - Rash morbilliform [Recovering/Resolving]
